FAERS Safety Report 9005903 (Version 2)
Quarter: 2013Q1

REPORT INFORMATION
  Report Type: Spontaneous
  Country: US (occurrence: US)
  Receive Date: 20130109
  Receipt Date: 20130130
  Transmission Date: 20140127
  Serious: No
  Sender: FDA-Public Use
  Company Number: US-BAYER-2013-002361

PATIENT
  Age: 60 Year
  Sex: Female
  Weight: 63 kg

DRUGS (4)
  1. ALEVE CAPLET/TABLET,MIDOL EXTENDED RELIEF CAPLET [Suspect]
     Indication: PAIN
     Dosage: USED ONLY ONE TIME
     Route: 048
     Dates: start: 20130101, end: 20130102
  2. AZITHROMYCIN [Concomitant]
  3. VITAMIN C [Concomitant]
  4. CALCIUM [Concomitant]

REACTIONS (6)
  - Overdose [None]
  - Hyperhidrosis [Not Recovered/Not Resolved]
  - Dizziness [Not Recovered/Not Resolved]
  - Pollakiuria [Not Recovered/Not Resolved]
  - Nausea [None]
  - Palpitations [None]
